FAERS Safety Report 5009048-X (Version None)
Quarter: 2006Q2

REPORT INFORMATION
  Report Type: 
  Country: None (occurrence: None)
  Receive Date: 20060523
  Receipt Date: 20060517
  Transmission Date: 20061013
  Serious: Yes (Life-Threatening)
  Sender: FDA-Public Use
  Company Number: IT-BOEHRINGER INGELHEIM PHARMACEUTICALS, INC.-2006-IT-00117IT

PATIENT
  Sex: Female

DRUGS (9)
  1. MEXITIL [Suspect]
     Indication: ATRIAL FIBRILLATION
     Route: 048
     Dates: start: 20050801, end: 20060430
  2. COUMADIN [Suspect]
     Indication: ATRIAL FIBRILLATION
     Dosage: DOSAGE BASED ON INR VALUE
     Route: 048
     Dates: start: 20021201, end: 20060517
  3. CISTOBIL [Suspect]
     Indication: SECONDARY HYPOTHYROIDISM
     Route: 048
     Dates: start: 20050501, end: 20050630
  4. RANITIDINE [Concomitant]
  5. LASIX [Concomitant]
     Route: 048
  6. RYTHMOL [Concomitant]
     Route: 048
  7. LOSAPREX [Concomitant]
  8. SEQUACOR [Concomitant]
  9. DELTACORTENE [Concomitant]

REACTIONS (5)
  - ARTERIOVENOUS FISTULA [None]
  - ASCITES [None]
  - BLOOD ALKALINE PHOSPHATASE INCREASED [None]
  - GAMMA-GLUTAMYLTRANSFERASE INCREASED [None]
  - HEPATIC LESION [None]
